FAERS Safety Report 7455569-X (Version None)
Quarter: 2011Q2

REPORT INFORMATION
  Report Type: 
  Country: None (occurrence: None)
  Receive Date: 20110503
  Receipt Date: 20110425
  Transmission Date: 20111010
  Serious: Yes (Other)
  Sender: FDA-Public Use
  Company Number: CH-TEVA-278497ISR

PATIENT
  Age: 60 Year
  Sex: Female

DRUGS (1)
  1. RISPERIDONE [Suspect]
     Indication: NEOPLASM MALIGNANT

REACTIONS (6)
  - PYREXIA [None]
  - CHILLS [None]
  - FACIAL PARESIS [None]
  - SALIVARY HYPERSECRETION [None]
  - ATAXIA [None]
  - ENCEPHALOPATHY [None]
